FAERS Safety Report 4379649-0 (Version None)
Quarter: 2004Q2

REPORT INFORMATION
  Report Type: 
  Country: None (occurrence: None)
  Receive Date: 20040617
  Receipt Date: 20030407
  Transmission Date: 20050107
  Serious: Yes (Death, Hospitalization, Disabling, Other)
  Sender: FDA-Public Use
  Company Number: US-MERCK-0304USA00825

PATIENT
  Age: 89 Year
  Sex: Female
  Weight: 52 kg

DRUGS (2)
  1. VIOXX [Suspect]
     Indication: OSTEOARTHRITIS
     Route: 048
  2. VIOXX [Suspect]
     Indication: PAIN
     Route: 048

REACTIONS (31)
  - ANAEMIA [None]
  - ANXIETY [None]
  - ARTHRALGIA [None]
  - ASTHMA [None]
  - ATRIAL FIBRILLATION [None]
  - BLOOD CHOLESTEROL INCREASED [None]
  - BRADYCARDIA [None]
  - BRONCHOSPASM [None]
  - CARDIAC DISCOMFORT [None]
  - CARDIAC FAILURE CONGESTIVE [None]
  - CARDIAC MURMUR [None]
  - CARDIAC VALVE DISEASE [None]
  - CARDIOMYOPATHY [None]
  - DEATH [None]
  - DISORIENTATION [None]
  - EMOTIONAL DISTRESS [None]
  - EYE HAEMORRHAGE [None]
  - GLAUCOMA [None]
  - HEART RATE IRREGULAR [None]
  - HERPES ZOSTER [None]
  - HYPERSENSITIVITY [None]
  - HYPERTENSION [None]
  - HYPOAESTHESIA [None]
  - HYPOTENSION [None]
  - INTERSTITIAL LUNG DISEASE [None]
  - OEDEMA PERIPHERAL [None]
  - OSTEOPOROSIS [None]
  - PULMONARY HYPERTENSION [None]
  - RHEUMATIC HEART DISEASE [None]
  - SPINAL COMPRESSION FRACTURE [None]
  - TRACHEAL OBSTRUCTION [None]
